FAERS Safety Report 4311531-7 (Version None)
Quarter: 2004Q1

REPORT INFORMATION
  Report Type: 
  Country: None (occurrence: None)
  Receive Date: 20040304
  Receipt Date: 20040226
  Transmission Date: 20041129
  Serious: Yes (Other)
  Sender: FDA-Public Use
  Company Number: BW-BRISTOL-MYERS SQUIBB COMPANY-12517645

PATIENT
  Age: 39 Year
  Sex: Male

DRUGS (2)
  1. EFAVIRENZ [Suspect]
     Indication: HIV INFECTION
     Dates: start: 20031113
  2. COMBIVIR [Suspect]
     Indication: HIV INFECTION
     Dates: start: 20031113

REACTIONS (1)
  - NEUTROPENIA [None]
